FAERS Safety Report 21035465 (Version 1)
Quarter: 2022Q3

REPORT INFORMATION
  Report Type: Spontaneous
  Country: US (occurrence: None)
  Receive Date: 20220701
  Receipt Date: 20220701
  Transmission Date: 20221026
  Serious: Yes (unspecified)
  Sender: FDA-Public Use
  Company Number: None

PATIENT
  Age: 20 Year
  Sex: Male
  Weight: 64 kg

DRUGS (1)
  1. BEBTELOVIMAB [Suspect]
     Active Substance: BEBTELOVIMAB
     Indication: COVID-19 treatment
     Dosage: FREQUENCY : ONCE;?
     Route: 040
     Dates: start: 20220701, end: 20220701

REACTIONS (5)
  - Cough [None]
  - Feeling abnormal [None]
  - Retching [None]
  - Unresponsive to stimuli [None]
  - Infusion related reaction [None]

NARRATIVE: CASE EVENT DATE: 20220701
